FAERS Safety Report 8844113 (Version 1)
Quarter: 2012Q4

REPORT INFORMATION
  Report Type: 
  Country: US (occurrence: US)
  Receive Date: 20121016
  Receipt Date: 20121016
  Transmission Date: 20130627
  Serious: Yes (Hospitalization)
  Sender: FDA-Public Use
  Company Number: US-RANBAXY-2012US-60918

PATIENT
  Age: 67 Year
  Sex: Male

DRUGS (1)
  1. HYDROCODONE + ACETAMINOPHEN [Suspect]
     Indication: CERVICOGENIC HEADACHE
     Dosage: 10/325 mg, 6-8 times daily
     Route: 065

REACTIONS (3)
  - Drug dependence [Unknown]
  - Drug ineffective for unapproved indication [Unknown]
  - Drug abuse [Unknown]
